FAERS Safety Report 12909874 (Version 1)
Quarter: 2016Q4

REPORT INFORMATION
  Report Type: Spontaneous
  Country: US (occurrence: US)
  Receive Date: 20161104
  Receipt Date: 20161104
  Transmission Date: 20170207
  Serious: Yes (Other)
  Sender: FDA-Public Use
  Company Number: US-BAYER-2016-207982

PATIENT
  Age: 67 Year
  Sex: Male

DRUGS (5)
  1. RADIUM-223 DICHLORIDE [Suspect]
     Active Substance: RADIUM RA-223 DICHLORIDE
     Indication: METASTASES TO BONE
  2. QUADRAMET [Suspect]
     Active Substance: SAMARIUM SM-153 LEXIDRONAM PENTASODIUM
     Indication: METASTASES TO BONE
  3. QUADRAMET [Suspect]
     Active Substance: SAMARIUM SM-153 LEXIDRONAM PENTASODIUM
     Indication: PROSTATE CANCER STAGE IV
  4. RADIUM-223 DICHLORIDE [Suspect]
     Active Substance: RADIUM RA-223 DICHLORIDE
     Indication: BACK PAIN
  5. RADIUM-223 DICHLORIDE [Suspect]
     Active Substance: RADIUM RA-223 DICHLORIDE
     Indication: PROSTATE CANCER STAGE IV

REACTIONS (6)
  - Metastases to liver [None]
  - Metastases to lung [None]
  - Anaemia [None]
  - Metastases to central nervous system [None]
  - Metastases to lymph nodes [None]
  - Prostate cancer stage IV [None]
